FAERS Safety Report 5823078-7 (Version None)
Quarter: 2008Q3

REPORT INFORMATION
  Report Type: 
  Country: None (occurrence: None)
  Receive Date: 20080725
  Receipt Date: 20070702
  Transmission Date: 20090109
  Serious: No
  Sender: FDA-Public Use
  Company Number: US-AMGEN-KDL232336

PATIENT
  Sex: Female

DRUGS (7)
  1. PROCRIT [Suspect]
     Indication: RENAL FAILURE CHRONIC
     Dates: start: 20070626
  2. NORVASC [Suspect]
  3. FELODIPINE [Concomitant]
  4. VITAMIN B-12 [Concomitant]
  5. VITAMIN B6 [Concomitant]
  6. ASCORBIC ACID [Concomitant]
  7. VITAMIN D [Concomitant]

REACTIONS (1)
  - NERVOUSNESS [None]
